FAERS Safety Report 11440746 (Version 1)
Quarter: 2015Q3

REPORT INFORMATION
  Report Type: Spontaneous
  Country: US (occurrence: US)
  Receive Date: 20150821
  Receipt Date: 20150821
  Transmission Date: 20151125
  Serious: No
  Sender: FDA-Public Use
  Company Number: US-ELI_LILLY_AND_COMPANY-US200708005952

PATIENT
  Age: 17 Year
  Sex: Female

DRUGS (1)
  1. CYMBALTA [Suspect]
     Active Substance: DULOXETINE HYDROCHLORIDE
     Indication: ANXIETY
     Dosage: 60 MG, DAILY (1/D)
     Route: 048
     Dates: start: 200605

REACTIONS (4)
  - Oesophageal pain [Unknown]
  - Throat irritation [Unknown]
  - Abdominal discomfort [Unknown]
  - Dry throat [Unknown]

NARRATIVE: CASE EVENT DATE: 20070827
